FAERS Safety Report 8462725-0 (Version None)
Quarter: 2012Q2

REPORT INFORMATION
  Report Type: 
  Country: None (occurrence: None)
  Receive Date: 20120625
  Receipt Date: 20120619
  Transmission Date: 20120825
  Serious: Yes (Life-Threatening, Hospitalization, Disabling)
  Sender: FDA-Public Use
  Company Number: FR-ROCHE-750055

PATIENT
  Sex: Female
  Weight: 54 kg

DRUGS (17)
  1. METHOTREXATE [Suspect]
     Indication: RHEUMATOID ARTHRITIS
  2. ACTEMRA [Suspect]
     Indication: RHEUMATOID ARTHRITIS
  3. ACETAMINOPHEN [Concomitant]
  4. FERROUS SULFATE TAB [Concomitant]
  5. PIROXICAM [Suspect]
     Indication: RHEUMATOID ARTHRITIS
  6. FOLIC ACID [Concomitant]
  7. INDAPAMIDE [Concomitant]
  8. MABTHERA [Suspect]
     Indication: RHEUMATOID ARTHRITIS
  9. ALUMINUM HYDROXIDE AND MAGNESIUM TRISILICATE [Concomitant]
  10. OMEPRAZOLE [Concomitant]
     Indication: PROPHYLAXIS
     Route: 048
  11. CALCIUM CARBONATE [Concomitant]
  12. PREDNISONE TAB [Concomitant]
     Indication: RHEUMATOID ARTHRITIS
     Route: 048
  13. VITAMIN D [Concomitant]
     Dosage: FORM: VIAL
  14. ARIXTRA [Concomitant]
  15. ETANERCEPT [Suspect]
     Indication: RHEUMATOID ARTHRITIS
     Route: 058
  16. PROTELOS [Concomitant]
     Indication: OSTEOPOROSIS
     Route: 048
  17. IMODIUM [Concomitant]

REACTIONS (8)
  - DIVERTICULITIS [None]
  - PULMONARY EMBOLISM [None]
  - PERITONITIS [None]
  - INTESTINAL PERFORATION [None]
  - DIFFUSE LARGE B-CELL LYMPHOMA [None]
  - LYMPHOPENIA [None]
  - LYMPHOMA [None]
  - CYTOMEGALOVIRUS COLITIS [None]
